FAERS Safety Report 12416782 (Version 1)
Quarter: 2016Q2

REPORT INFORMATION
  Report Type: Spontaneous
  Country: CL (occurrence: CL)
  Receive Date: 20160530
  Receipt Date: 20160530
  Transmission Date: 20160815
  Serious: Yes (Hospitalization, Other)
  Sender: FDA-Public Use
  Company Number: CL-IPCA LABORATORIES LIMITED-IPC201605-000461

PATIENT
  Age: 74 Year
  Sex: Male

DRUGS (7)
  1. ASPIRIN. [Concomitant]
     Active Substance: ASPIRIN
  2. FUROSEMIDE. [Concomitant]
     Active Substance: FUROSEMIDE
  3. METFORMIN HYDROCHLORIDE. [Suspect]
     Active Substance: METFORMIN HYDROCHLORIDE
  4. ATORVASTATIN [Concomitant]
     Active Substance: ATORVASTATIN
  5. VILDAGLIPTIN/METFORMIN [Suspect]
     Active Substance: METFORMIN HYDROCHLORIDE\VILDAGLIPTIN
  6. BISOPROLOL [Concomitant]
     Active Substance: BISOPROLOL
  7. SPIRONOLACTONE. [Concomitant]
     Active Substance: SPIRONOLACTONE

REACTIONS (3)
  - Lactic acidosis [Recovering/Resolving]
  - Hyperkalaemia [Recovered/Resolved]
  - Overdose [Unknown]
